FAERS Safety Report 7181623-6 (Version None)
Quarter: 2010Q4

REPORT INFORMATION
  Report Type: 
  Country: None (occurrence: None)
  Receive Date: 20101221
  Receipt Date: 20100427
  Transmission Date: 20110411
  Serious: No
  Sender: FDA-Public Use
  Company Number: US-AMGEN-KDL406945

PATIENT

DRUGS (3)
  1. ENBREL [Suspect]
     Indication: RHEUMATOID ARTHRITIS
     Dosage: 50 MG, 2 TIMES/WK
     Route: 058
     Dates: start: 20100415, end: 20100419
  2. PREDNISONE [Concomitant]
     Dosage: UNK UNK, UNK
  3. OXYCODONE [Concomitant]
     Dosage: UNK UNK, UNK

REACTIONS (1)
  - INCORRECT DOSE ADMINISTERED [None]
